FAERS Safety Report 6849911-8 (Version None)
Quarter: 2010Q3

REPORT INFORMATION
  Report Type: 
  Country: None (occurrence: None)
  Receive Date: 20100716
  Receipt Date: 20071008
  Transmission Date: 20110219
  Serious: No
  Sender: FDA-Public Use
  Company Number: US-PFIZER INC-2007085214

PATIENT
  Sex: Female
  Weight: 52.2 kg

DRUGS (5)
  1. CHANTIX [Suspect]
     Indication: SMOKING CESSATION THERAPY
     Route: 048
     Dates: start: 20070901
  2. VERAPAMIL [Concomitant]
  3. MULTI-VITAMINS [Concomitant]
  4. WARFARIN SODIUM [Concomitant]
  5. DRUG, UNSPECIFIED [Concomitant]

REACTIONS (2)
  - FLATULENCE [None]
  - NAUSEA [None]
